FAERS Safety Report 10166245 (Version 1)
Quarter: 2014Q2

REPORT INFORMATION
  Report Type: Report from Study
  Country: CA (occurrence: CA)
  Receive Date: 20140512
  Receipt Date: 20140512
  Transmission Date: 20141212
  Serious: Yes (Other)
  Sender: FDA-Public Use
  Company Number: CA-JNJFOC-20140500819

PATIENT
  Age: 0 Day
  Sex: Female
  Weight: 2.61 kg

DRUGS (3)
  1. REMICADE [Suspect]
     Indication: COLITIS ULCERATIVE
     Route: 063
     Dates: start: 20080715
  2. REMICADE [Suspect]
     Indication: COLITIS ULCERATIVE
     Route: 063
     Dates: start: 200807
  3. LABETALOL [Suspect]
     Indication: PRODUCT USED FOR UNKNOWN INDICATION
     Route: 063

REACTIONS (3)
  - Foetal exposure during pregnancy [Recovered/Resolved]
  - Neonatal respiratory depression [Recovered/Resolved]
  - Exposure during breast feeding [Unknown]
